FAERS Safety Report 20423795 (Version 1)
Quarter: 2022Q1

REPORT INFORMATION
  Report Type: Report from Study
  Country: US (occurrence: US)
  Receive Date: 20220203
  Receipt Date: 20220203
  Transmission Date: 20220423
  Serious: Yes (Hospitalization)
  Sender: FDA-Public Use
  Company Number: US-EXELIXIS-CABO-20035895

PATIENT
  Age: 71 Year
  Sex: Male

DRUGS (20)
  1. CABOMETYX [Suspect]
     Active Substance: CABOZANTINIB S-MALATE
     Indication: Metastatic renal cell carcinoma
     Dosage: 60 MG, QD
     Route: 048
     Dates: start: 20201016, end: 20201207
  2. CABOMETYX [Suspect]
     Active Substance: CABOZANTINIB S-MALATE
     Indication: Metastases to bone
  3. PERCOCET [Concomitant]
     Active Substance: ACETAMINOPHEN\OXYCODONE HYDROCHLORIDE
  4. TRAMADOL [Concomitant]
     Active Substance: TRAMADOL
  5. DEXAMETHASONE [Concomitant]
     Active Substance: DEXAMETHASONE
  6. ZOFRAN [Concomitant]
     Active Substance: ONDANSETRON HYDROCHLORIDE
  7. LISINOPRIL [Concomitant]
     Active Substance: LISINOPRIL
  8. NEXIUM [Concomitant]
     Active Substance: ESOMEPRAZOLE MAGNESIUM
  9. JANUMET [Concomitant]
     Active Substance: METFORMIN HYDROCHLORIDE\SITAGLIPTIN PHOSPHATE
  10. MAGNESIUM OXIDE [Concomitant]
     Active Substance: MAGNESIUM OXIDE
  11. ATIVAN [Concomitant]
     Active Substance: LORAZEPAM
  12. ALBUTEROL [Concomitant]
     Active Substance: ALBUTEROL
  13. FLOVENT [Concomitant]
     Active Substance: FLUTICASONE PROPIONATE
  14. SYNTHROID [Concomitant]
     Active Substance: LEVOTHYROXINE SODIUM
  15. SINGULAIR [Concomitant]
     Active Substance: MONTELUKAST SODIUM
  16. CYMBALTA [Concomitant]
     Active Substance: DULOXETINE HYDROCHLORIDE
  17. LYRICA [Concomitant]
     Active Substance: PREGABALIN
  18. XARELTO [Concomitant]
     Active Substance: RIVAROXABAN
  19. CRESTOR [Concomitant]
     Active Substance: ROSUVASTATIN CALCIUM
  20. JANUVIA [Concomitant]
     Active Substance: SITAGLIPTIN PHOSPHATE

REACTIONS (1)
  - Dyspnoea [Recovering/Resolving]

NARRATIVE: CASE EVENT DATE: 20201123
